FAERS Safety Report 16046244 (Version 7)
Quarter: 2020Q3

REPORT INFORMATION
  Report Type: Spontaneous
  Country: PT (occurrence: PT)
  Receive Date: 20190307
  Receipt Date: 20190624
  Transmission Date: 20201105
  Serious: Yes (Other)
  Sender: FDA-Public Use
  Company Number: IND-PT-009507513-1903PRT002516

PATIENT
  Age: 50 Year
  Sex: Female

DRUGS (1)
  1. ETORICOXIB. [Suspect]
     Active Substance: ETORICOXIB
     Dosage: 12 HOURS AFTER KNEE SURGERY, BLISTER OF 20 UNITS
     Route: 048

REACTIONS (1)
  - Dermatitis bullous [Recovered/Resolved]
